FAERS Safety Report 6916490-6 (Version None)
Quarter: 2010Q3

REPORT INFORMATION
  Report Type: 
  Country: None (occurrence: None)
  Receive Date: 20100810
  Receipt Date: 20100806
  Transmission Date: 20110219
  Serious: Yes (Death)
  Sender: FDA-Public Use
  Company Number: PHHY2009GB48241

PATIENT
  Sex: Male

DRUGS (3)
  1. CLOZARIL [Suspect]
     Indication: PARKINSON'S DISEASE
     Dosage: 12.5MG DAILY
     Route: 048
     Dates: start: 20061119
  2. CLOZARIL [Suspect]
     Indication: PSYCHOTIC DISORDER
  3. CLOZARIL [Suspect]
     Indication: DEMENTIA WITH LEWY BODIES

REACTIONS (1)
  - DEATH [None]
